FAERS Safety Report 4324894-3 (Version None)
Quarter: 2004Q1

REPORT INFORMATION
  Report Type: 
  Country: None (occurrence: None)
  Receive Date: 20040326
  Receipt Date: 20040301
  Transmission Date: 20041129
  Serious: Yes (Death, Hospitalization)
  Sender: FDA-Public Use
  Company Number: PHEH2004US02516

PATIENT
  Age: 84 Year
  Sex: Male

DRUGS (14)
  1. SANDOSTATIN [Suspect]
  2. HUMALOG [Concomitant]
  3. CATAPRES-TTS-1 [Concomitant]
     Route: 062
  4. LASIX                                   /SCH/ [Concomitant]
     Dosage: 80 MG, BID
  5. LISINOPRIL [Concomitant]
     Dosage: 20 MG, QD
  6. PREVACID [Concomitant]
     Dosage: 30 MG, QD
  7. SYNTHROID [Concomitant]
     Dosage: .1 MG, QD
  8. ALLOPURINOL [Concomitant]
     Dosage: 300 MG, QD
  9. COUMADIN [Concomitant]
     Dosage: 5 MG Q5DAYS, 2.5 MG BID
  10. LEXAPRO [Concomitant]
     Dosage: 20 MG, QD
  11. ADAIR [Concomitant]
     Dosage: 100/50 ONE PUFF BID
  12. POTASSIUM CHLORIDE [Concomitant]
     Dosage: 10 MEQ, BID
  13. HUMULIN N [Concomitant]
     Dosage: 20 UNITS AM; 7 UNITS PM
  14. LOMOTIL [Concomitant]

REACTIONS (21)
  - ABASIA [None]
  - BLOOD CREATININE INCREASED [None]
  - BLOOD UREA INCREASED [None]
  - CARDIAC FAILURE CONGESTIVE [None]
  - CHRONIC OBSTRUCTIVE AIRWAYS DISEASE EXACERBATED [None]
  - COUGH [None]
  - CRACKLES LUNG [None]
  - DIFFICULTY IN WALKING [None]
  - DYSPNOEA [None]
  - HEART RATE IRREGULAR [None]
  - HYPOXIA [None]
  - LIVER FUNCTION TEST ABNORMAL [None]
  - MENTAL STATUS CHANGES [None]
  - MULTI-ORGAN FAILURE [None]
  - PHARYNGOLARYNGEAL PAIN [None]
  - PNEUMONIA ASPIRATION [None]
  - PULMONARY CONGESTION [None]
  - PYREXIA [None]
  - RESPIRATORY FAILURE [None]
  - UNRESPONSIVE TO PAIN STIMULI [None]
  - URINE OUTPUT DECREASED [None]
